FAERS Safety Report 8405319-5 (Version None)
Quarter: 2012Q2

REPORT INFORMATION
  Report Type: 
  Country: None (occurrence: None)
  Receive Date: 20120604
  Receipt Date: 20120525
  Transmission Date: 20120825
  Serious: Yes (Other)
  Sender: FDA-Public Use
  Company Number: NL-AMGEN-NLDSP2012033230

PATIENT
  Age: 56 Year
  Sex: Female

DRUGS (1)
  1. ARANESP [Suspect]
     Indication: PRODUCT USED FOR UNKNOWN INDICATION
     Dosage: 80 MUG, UNK
     Route: 058
     Dates: start: 20120524

REACTIONS (12)
  - HYPOAESTHESIA ORAL [None]
  - SWELLING FACE [None]
  - SENSATION OF HEAVINESS [None]
  - THYROID PAIN [None]
  - SLOW SPEECH [None]
  - HYPOAESTHESIA [None]
  - FATIGUE [None]
  - LIP SWELLING [None]
  - HEADACHE [None]
  - DYSPHAGIA [None]
  - FACIAL ASYMMETRY [None]
  - BLOOD PRESSURE INCREASED [None]
